FAERS Safety Report 21519936 (Version 1)
Quarter: 2022Q4

REPORT INFORMATION
  Report Type: Report from Study
  Country: TW (occurrence: None)
  Receive Date: 20221028
  Receipt Date: 20221028
  Transmission Date: 20230112
  Serious: Yes (Death)
  Sender: FDA-Public Use
  Company Number: 2022A356123

PATIENT
  Age: 57 Year
  Sex: Female

DRUGS (1)
  1. IMFINZI [Suspect]
     Active Substance: DURVALUMAB
     Dosage: 600.0MG UNKNOWN
     Route: 042
     Dates: start: 20220418

REACTIONS (1)
  - Death [Fatal]

NARRATIVE: CASE EVENT DATE: 20221007
